FAERS Safety Report 9105720 (Version 1)
Quarter: 2013Q1

REPORT INFORMATION
  Report Type: Spontaneous
  Country: US (occurrence: US)
  Receive Date: 20130220
  Receipt Date: 20130220
  Transmission Date: 20140127
  Serious: Yes (Hospitalization, Other)
  Sender: FDA-Public Use
  Company Number: US-UCBSA-074574

PATIENT
  Age: 67 Year
  Sex: Male
  Weight: 88.45 kg

DRUGS (2)
  1. KEPPRA [Suspect]
     Indication: CONVULSION
     Dosage: STRENGTH: 500MG
  2. KEPPRA [Suspect]
     Indication: CONVULSION

REACTIONS (5)
  - Brain operation [Unknown]
  - Convulsion [Unknown]
  - Headache [Unknown]
  - Overdose [Unknown]
  - Dizziness [Unknown]
